FAERS Safety Report 8858885 (Version 1)
Quarter: 2012Q4

REPORT INFORMATION
  Report Type: 
  Country: US (occurrence: US)
  Receive Date: 20121024
  Receipt Date: 20121024
  Transmission Date: 20130627
  Serious: Yes (Other)
  Sender: FDA-Public Use
  Company Number: US-ACTELION-A-NJ2012-65770

PATIENT
  Age: 35 Year
  Sex: Female

DRUGS (4)
  1. VENTAVIS [Suspect]
     Indication: PULMONARY ARTERIAL HYPERTENSION
     Dosage: UNK
     Route: 055
     Dates: start: 20120410, end: 20121015
  2. VENTAVIS [Suspect]
     Dosage: UNK
     Route: 055
     Dates: end: 20121015
  3. SILDENAFIL [Concomitant]
  4. LETAIRIS [Concomitant]

REACTIONS (10)
  - Deafness [Unknown]
  - Ocular icterus [Unknown]
  - Chills [Unknown]
  - Flushing [Unknown]
  - Dizziness [Unknown]
  - Headache [Unknown]
  - Lethargy [Unknown]
  - Cough [Unknown]
  - Fatigue [Unknown]
  - Diarrhoea [Unknown]
